FAERS Safety Report 9402120 (Version 1)
Quarter: 2013Q3

REPORT INFORMATION
  Report Type: Spontaneous
  Country: US (occurrence: None)
  Receive Date: 20130712
  Receipt Date: 20130712
  Transmission Date: 20140515
  Serious: Yes (Hospitalization)
  Sender: FDA-Public Use
  Company Number: None

PATIENT
  Age: 66 Year
  Sex: Female
  Weight: 94.9 kg

DRUGS (2)
  1. CARBOPLATIN [Suspect]
  2. PACLITAXEL (TAXOL) [Suspect]

REACTIONS (8)
  - Paraesthesia [None]
  - Oedema peripheral [None]
  - Deep vein thrombosis [None]
  - Pain in extremity [None]
  - Neuropathy peripheral [None]
  - Neutropenia [None]
  - Pyrexia [None]
  - Neutrophil count decreased [None]
